FAERS Safety Report 11714927 (Version 2)
Quarter: 2015Q4

REPORT INFORMATION
  Report Type: Spontaneous
  Country: US (occurrence: US)
  Receive Date: 20151109
  Receipt Date: 20151120
  Transmission Date: 20160304
  Serious: Yes (Other)
  Sender: FDA-Public Use
  Company Number: US-SMITH AND NEPHEW, INC-2015SMT00474

PATIENT
  Age: 59 Year
  Sex: Male
  Weight: 127.89 kg

DRUGS (1)
  1. REGRANEX [Suspect]
     Active Substance: BECAPLERMIN
     Indication: DIABETIC FOOT
     Dosage: UNK UNK, 1X/DAY
     Route: 061
     Dates: start: 20151008, end: 2015

REACTIONS (2)
  - Osteomyelitis [Unknown]
  - Culture wound positive [Unknown]

NARRATIVE: CASE EVENT DATE: 20151020
